FAERS Safety Report 10647780 (Version 2)
Quarter: 2018Q3

REPORT INFORMATION
  Report Type: Spontaneous
  Country: US (occurrence: US)
  Receive Date: 20141212
  Receipt Date: 20180908
  Transmission Date: 20181010
  Serious: No
  Sender: FDA-Public Use
  Company Number: US-009507513-1412USA006125

PATIENT
  Age: 32 Year
  Sex: Female

DRUGS (4)
  1. ISENTRESS [Suspect]
     Active Substance: RALTEGRAVIR POTASSIUM
     Dosage: 800 (UNIT NOT REPORTED), QD
     Route: 048
     Dates: start: 20121215
  2. ETRAVIRINE [Suspect]
     Active Substance: ETRAVIRINE
     Dosage: 400 (UNIT NOT REPORTED), QD
     Route: 048
     Dates: start: 20121215
  3. RITONAVIR. [Suspect]
     Active Substance: RITONAVIR
     Dosage: 200 (UNIT NOT REPORTED), QD
     Route: 048
     Dates: start: 20121215
  4. DARUNAVIR [Suspect]
     Active Substance: DARUNAVIR
     Dosage: 1200 (UNIT NOT REPORTED), QD
     Route: 048
     Dates: start: 20121215

REACTIONS (1)
  - Maternal exposure during pregnancy [Recovered/Resolved]
